FAERS Safety Report 4773133-8 (Version None)
Quarter: 2005Q3

REPORT INFORMATION
  Report Type: 
  Country: None (occurrence: None)
  Receive Date: 20050915
  Receipt Date: 20050915
  Transmission Date: 20060218
  Serious: Yes (Other)
  Sender: FDA-Public Use
  Company Number: None

PATIENT
  Sex: Female
  Weight: 68.0396 kg

DRUGS (2)
  1. EFFEXOR XR [Suspect]
     Indication: ANXIETY
     Dosage: 75MG   1X PER DAY  PO
     Route: 048
     Dates: start: 20020301, end: 20050704
  2. EFFEXOR XR [Suspect]
     Indication: DEPRESSION
     Dosage: 75MG   1X PER DAY  PO
     Route: 048
     Dates: start: 20020301, end: 20050704

REACTIONS (5)
  - BACK PAIN [None]
  - DRUG WITHDRAWAL SYNDROME [None]
  - MIGRAINE [None]
  - NERVOUS SYSTEM DISORDER [None]
  - NIGHTMARE [None]
